FAERS Safety Report 13141801 (Version 1)
Quarter: 2017Q1

REPORT INFORMATION
  Report Type: Spontaneous
  Country: US (occurrence: US)
  Receive Date: 20170123
  Receipt Date: 20170123
  Transmission Date: 20170428
  Serious: Yes (Disabling)
  Sender: FDA-Public Use
  Company Number: None

PATIENT
  Age: 55 Year
  Sex: Male
  Weight: 119.25 kg

DRUGS (4)
  1. MEDROL [Suspect]
     Active Substance: METHYLPREDNISOLONE
     Indication: CERVICAL RADICULOPATHY
     Dosage: ?          QUANTITY:21 TABLET(S);?
     Route: 048
     Dates: start: 20161018, end: 20161018
  2. HYDROCHLOROTHIAZIDE AND LISINOPRIL [Concomitant]
     Active Substance: HYDROCHLOROTHIAZIDE\LISINOPRIL
  3. SIMVASTATIN. [Concomitant]
     Active Substance: SIMVASTATIN
  4. IBUPROFEN. [Concomitant]
     Active Substance: IBUPROFEN

REACTIONS (6)
  - Dizziness [None]
  - Cardiac flutter [None]
  - Heart rate increased [None]
  - Presyncope [None]
  - Arrhythmia [None]
  - Palpitations [None]

NARRATIVE: CASE EVENT DATE: 20161018
